FAERS Safety Report 11825000 (Version 1)
Quarter: 2015Q4

REPORT INFORMATION
  Report Type: Spontaneous
  Country: JP (occurrence: JP)
  Receive Date: 20151211
  Receipt Date: 20151211
  Transmission Date: 20160305
  Serious: Yes (Hospitalization, Other)
  Sender: FDA-Public Use
  Company Number: JP-TAKEDA-2015TJP023012

PATIENT
  Age: 61 Year
  Sex: Female
  Weight: 68.1 kg

DRUGS (14)
  1. ZYPREXA [Suspect]
     Active Substance: OLANZAPINE
     Indication: DEPRESSION
     Dosage: 5 MG, QD
     Route: 048
     Dates: end: 20150728
  2. LOXOPROFEN [Suspect]
     Active Substance: LOXOPROFEN
     Indication: PRODUCT USED FOR UNKNOWN INDICATION
     Dosage: 180 MG, UNK
     Route: 048
     Dates: end: 20150728
  3. CETILO [Suspect]
     Active Substance: SENNA LEAF
     Indication: PRODUCT USED FOR UNKNOWN INDICATION
     Dosage: 6 DF, TID
     Route: 048
     Dates: end: 20150728
  4. EPERISONE HYDROCHLORIDE [Suspect]
     Active Substance: EPERISONE HYDROCHLORIDE
     Indication: PRODUCT USED FOR UNKNOWN INDICATION
     Dosage: 150 MG, UNK
     Route: 048
     Dates: end: 20150728
  5. TAKEPRON OD TABLETS 15 [Suspect]
     Active Substance: LANSOPRAZOLE
     Dosage: 15 MG, QD
     Route: 048
     Dates: end: 20150728
  6. EURODIN (DIHYDROERGOCRISTINE MESYLATE) [Suspect]
     Active Substance: DIHYDROERGOCRISTINE MESYLATE
     Dosage: 2 MG, UNK
     Route: 048
     Dates: end: 20150728
  7. VEGETAMIN A [Suspect]
     Active Substance: CHLORPROMAZINE HYDROCHLORIDE\PHENOBARBITAL\PROMETHAZINE
     Indication: DEPRESSION
     Dosage: 1 DF, UNK
     Route: 048
     Dates: end: 20150728
  8. RIVOTRIL [Suspect]
     Active Substance: CLONAZEPAM
     Indication: DEPRESSION
     Dosage: 1 MG, TID
     Route: 048
     Dates: end: 20150728
  9. VEGETAMIN B [Suspect]
     Active Substance: CHLORPROMAZINE HYDROCHLORIDE\PHENOBARBITAL\PROMETHAZINE
     Indication: DEPRESSION
     Dosage: 1 DF, UNK
     Route: 048
     Dates: end: 20150728
  10. ROHYPNOL [Suspect]
     Active Substance: FLUNITRAZEPAM
     Indication: DEPRESSION
     Dosage: 1 MG, UNK
     Route: 048
     Dates: end: 20150728
  11. JZOLOFT [Suspect]
     Active Substance: SERTRALINE HYDROCHLORIDE
     Indication: DEPRESSION
     Dosage: 100 MG, QD
     Route: 048
     Dates: end: 20150728
  12. SENNOSIDE A+B [Suspect]
     Active Substance: SENNOSIDES A AND B
     Indication: PRODUCT USED FOR UNKNOWN INDICATION
     Dosage: 24 MG, QD
     Route: 048
     Dates: end: 20150728
  13. LIMAS [Suspect]
     Active Substance: LITHIUM CARBONATE
     Indication: DEPRESSION
     Dosage: 400 MG, BID
     Route: 048
     Dates: end: 20150728
  14. REBAMIPIDE [Suspect]
     Active Substance: REBAMIPIDE
     Indication: PRODUCT USED FOR UNKNOWN INDICATION
     Dosage: 300 MG, TID
     Route: 048
     Dates: end: 20150728

REACTIONS (3)
  - Hyponatraemia [Recovered/Resolved]
  - Neuroleptic malignant syndrome [Recovering/Resolving]
  - Water intoxication [Recovered/Resolved]

NARRATIVE: CASE EVENT DATE: 20150725
